FAERS Safety Report 5816675-6 (Version None)
Quarter: 2008Q3

REPORT INFORMATION
  Report Type: 
  Country: None (occurrence: None)
  Receive Date: 20080721
  Receipt Date: 20080709
  Transmission Date: 20090109
  Serious: Yes (Other)
  Sender: FDA-Public Use
  Company Number: JP-PFIZER INC-2008056725

PATIENT
  Age: 64 Year
  Sex: Male

DRUGS (5)
  1. ZOLOFT [Suspect]
     Indication: DEPRESSION
     Dosage: DAILY DOSE:100MG
     Route: 048
     Dates: start: 20080329, end: 20080627
  2. SULPIRIDE [Concomitant]
     Route: 048
  3. SODIUM PICOSULFATE [Concomitant]
     Route: 048
  4. PREDNISOLONE [Concomitant]
     Route: 048
  5. FAMOTIDINE [Concomitant]
     Route: 048

REACTIONS (1)
  - RETROGRADE AMNESIA [None]
